FAERS Safety Report 18204596 (Version 1)
Quarter: 2020Q3

REPORT INFORMATION
  Report Type: Spontaneous
  Country: US (occurrence: US)
  Receive Date: 20200827
  Receipt Date: 20200827
  Transmission Date: 20201103
  Serious: No
  Sender: FDA-Public Use
  Company Number: US-PFIZER INC-2020326178

PATIENT
  Age: 66 Year
  Sex: Female

DRUGS (1)
  1. XALKORI [Suspect]
     Active Substance: CRIZOTINIB
     Indication: CHOLANGIOCARCINOMA
     Dosage: 250 MG

REACTIONS (7)
  - Abscess [Unknown]
  - Post procedural complication [Unknown]
  - Pyrexia [Unknown]
  - Product use in unapproved indication [Unknown]
  - Off label use [Unknown]
  - Post procedural infection [Unknown]
  - Drain site complication [Unknown]
